FAERS Safety Report 5317753-0 (Version None)
Quarter: 2007Q2

REPORT INFORMATION
  Report Type: 
  Country: None (occurrence: None)
  Receive Date: 20070502
  Receipt Date: 20070502
  Transmission Date: 20071010
  Serious: Yes (Life-Threatening, Hospitalization)
  Sender: FDA-Public Use
  Company Number: None

PATIENT
  Sex: Female
  Weight: 100.5 kg

DRUGS (3)
  1. COUMADIN [Suspect]
     Indication: ATRIAL FIBRILLATION
     Dosage: 1 TABLET ONCE DAILY PO
     Route: 048
     Dates: start: 20070115, end: 20070124
  2. BACTRIM DS [Suspect]
     Indication: CELLULITIS
     Dosage: 2 TABLETS ONCE DAILY RECTAL
     Route: 054
     Dates: start: 20070122, end: 20070125
  3. BACTRIM DS [Suspect]
     Indication: STAPHYLOCOCCAL INFECTION
     Dosage: 2 TABLETS ONCE DAILY RECTAL
     Route: 054
     Dates: start: 20070122, end: 20070125

REACTIONS (3)
  - INTERNATIONAL NORMALISED RATIO INCREASED [None]
  - SMALL INTESTINAL HAEMORRHAGE [None]
  - VOMITING [None]
